FAERS Safety Report 11358361 (Version 2)
Quarter: 2015Q3

REPORT INFORMATION
  Report Type: Spontaneous
  Country: US (occurrence: US)
  Receive Date: 20150803
  Receipt Date: 20150821
  Transmission Date: 20151125
  Serious: No
  Sender: FDA-Public Use
  Company Number: US-ELI_LILLY_AND_COMPANY-US200706003575

PATIENT
  Sex: Female

DRUGS (18)
  1. PROTONIX [Concomitant]
     Active Substance: PANTOPRAZOLE SODIUM
     Indication: GASTROOESOPHAGEAL REFLUX DISEASE
     Dosage: UNK, EACH EVENING
  2. RANITIDINE [Concomitant]
     Active Substance: RANITIDINE\RANITIDINE HYDROCHLORIDE
     Dosage: UNK, EACH EVENING
  3. TRAMADOL. [Concomitant]
     Active Substance: TRAMADOL
     Dosage: 100 MG, EACH EVENING
  4. LEVOXYL [Concomitant]
     Active Substance: LEVOTHYROXINE SODIUM
     Dosage: 0.112 UG, UNK
  5. CYMBALTA [Suspect]
     Active Substance: DULOXETINE HYDROCHLORIDE
     Dosage: 60 MG, DAILY (1/D)
     Route: 048
     Dates: start: 2007, end: 2007
  6. STRATTERA [Suspect]
     Active Substance: ATOMOXETINE HYDROCHLORIDE
     Indication: DISTURBANCE IN ATTENTION
     Dosage: 40 MG, UNK
     Route: 048
     Dates: start: 200409
  7. TRAMADOL. [Concomitant]
     Active Substance: TRAMADOL
     Dosage: 400 MG, DAILY (1/D)
     Route: 048
  8. AMBIEN [Concomitant]
     Active Substance: ZOLPIDEM TARTRATE
     Dosage: 12.5 MG, UNK
  9. NEMBUTAL SODIUM [Concomitant]
     Active Substance: PENTOBARBITAL SODIUM
     Dosage: 8 D/F, UNK
  10. KLONOPIN [Concomitant]
     Active Substance: CLONAZEPAM
     Indication: ANXIETY
     Dosage: 1 MG, 3/D
  11. FLEXERIL [Concomitant]
     Active Substance: CYCLOBENZAPRINE HYDROCHLORIDE
     Dosage: 10 MG, 2/D
  12. ZYRTEC [Concomitant]
     Active Substance: CETIRIZINE HYDROCHLORIDE
  13. QVAR [Concomitant]
     Active Substance: BECLOMETHASONE DIPROPIONATE
     Indication: HYPERSENSITIVITY
  14. NABUMETONE. [Concomitant]
     Active Substance: NABUMETONE
     Dosage: 750 MG, 2/D
  15. CYMBALTA [Suspect]
     Active Substance: DULOXETINE HYDROCHLORIDE
     Indication: PAIN
     Dosage: 40 MG, DAILY (1/D)
     Route: 048
     Dates: start: 200703
  16. STRATTERA [Suspect]
     Active Substance: ATOMOXETINE HYDROCHLORIDE
     Dosage: 18 MG, 4/D
     Route: 048
  17. STRATTERA [Suspect]
     Active Substance: ATOMOXETINE HYDROCHLORIDE
     Dosage: 80 MG, UNK
     Route: 048
  18. SINGULAIR [Concomitant]
     Active Substance: MONTELUKAST SODIUM

REACTIONS (15)
  - Asthenia [Unknown]
  - Dry mouth [Unknown]
  - Pain [Unknown]
  - Feeling hot [Not Recovered/Not Resolved]
  - Crying [Unknown]
  - Osteopenia [Unknown]
  - Drug effect decreased [Unknown]
  - Fall [Unknown]
  - Constipation [Not Recovered/Not Resolved]
  - Anger [Unknown]
  - Ligament sprain [Unknown]
  - Depression [Unknown]
  - Irritability [Not Recovered/Not Resolved]
  - Alopecia [Unknown]
  - Nausea [Not Recovered/Not Resolved]

NARRATIVE: CASE EVENT DATE: 2004
